FAERS Safety Report 4927047-0 (Version None)
Quarter: 2006Q1

REPORT INFORMATION
  Report Type: 
  Country: None (occurrence: None)
  Receive Date: 20060228
  Receipt Date: 20051012
  Transmission Date: 20060701
  Serious: No
  Sender: FDA-Public Use
  Company Number: US-GLAXOSMITHKLINE-A0578009A

PATIENT
  Age: 63 Year
  Sex: Female

DRUGS (6)
  1. LAMICTAL [Suspect]
     Indication: BIPOLAR DISORDER
     Dosage: 75MG PER DAY
     Route: 048
     Dates: start: 20050301
  2. DEPAKOTE [Concomitant]
  3. TRAZODONE [Concomitant]
  4. XANAX [Concomitant]
  5. ZOLOFT [Concomitant]
  6. BUSPAR [Concomitant]

REACTIONS (4)
  - DIZZINESS [None]
  - FALL [None]
  - FATIGUE [None]
  - THERAPEUTIC RESPONSE UNEXPECTED [None]
